FAERS Safety Report 9052929 (Version 5)
Quarter: 2013Q2

REPORT INFORMATION
  Report Type: Spontaneous
  Country: US (occurrence: US)
  Receive Date: 20130207
  Receipt Date: 20130614
  Transmission Date: 20140414
  Serious: Yes (Hospitalization, Other)
  Sender: FDA-Public Use
  Company Number: US-009507513-1201USA03061

PATIENT
  Sex: Male

DRUGS (11)
  1. FOSAMAX [Suspect]
     Indication: OSTEOPOROSIS PROPHYLAXIS
     Dosage: UNK
     Route: 048
     Dates: start: 1997
  2. FOSAMAX [Suspect]
     Indication: OSTEOPOROSIS
     Dosage: 70 MG, QW
     Route: 048
     Dates: end: 201003
  3. ALENDRONATE SODIUM [Suspect]
     Indication: OSTEOPOROSIS PROPHYLAXIS
     Dosage: 70 MG, QW
     Route: 048
     Dates: start: 201003, end: 201011
  4. ALENDRONATE SODIUM [Suspect]
     Indication: OSTEOPOROSIS
  5. METHADONE HYDROCHLORIDE [Concomitant]
  6. ALPRAZOLAM [Concomitant]
  7. GABAPENTIN [Concomitant]
  8. OXYCODONE [Concomitant]
  9. ZONISAMIDE [Concomitant]
  10. MORPHINE [Concomitant]
  11. METANX [Concomitant]

REACTIONS (31)
  - Femur fracture [Recovered/Resolved]
  - Open reduction of fracture [Unknown]
  - Foot fracture [Unknown]
  - Foot fracture [Unknown]
  - Peripheral nerve operation [Unknown]
  - Cerebrovascular accident [Unknown]
  - Tibia fracture [Unknown]
  - Paraplegia [Unknown]
  - Fall [Unknown]
  - Vitamin D deficiency [Unknown]
  - Asthma [Unknown]
  - Tooth extraction [Unknown]
  - Oral surgery [Unknown]
  - Gastrointestinal disorder [Unknown]
  - Arthritis [Unknown]
  - Vascular operation [Unknown]
  - Laceration [Unknown]
  - Pallor [Unknown]
  - Carpal tunnel syndrome [Unknown]
  - Carpal tunnel decompression [Unknown]
  - Depression [Unknown]
  - Stress [Unknown]
  - Anxiety [Unknown]
  - Erectile dysfunction [Unknown]
  - Limb operation [Unknown]
  - Prostatic disorder [Unknown]
  - Post polio syndrome [Not Recovered/Not Resolved]
  - Excoriation [Unknown]
  - Back pain [Unknown]
  - Arthralgia [Unknown]
  - Abdominal pain [Unknown]
